FAERS Safety Report 6674015-7 (Version None)
Quarter: 2010Q2

REPORT INFORMATION
  Report Type: 
  Country: None (occurrence: None)
  Receive Date: 20100407
  Receipt Date: 20100323
  Transmission Date: 20101027
  Serious: Yes (Hospitalization)
  Sender: FDA-Public Use
  Company Number: 2010001044

PATIENT
  Age: 66 Year
  Sex: Male

DRUGS (11)
  1. ERLOTINIB HYDROCHLORIDE [Suspect]
     Indication: DRUG USE FOR UNKNOWN INDICATION
     Dosage: (150 MG), ORAL
     Route: 048
     Dates: start: 20100222, end: 20100304
  2. CISPLATIN [Suspect]
     Indication: LIP AND/OR ORAL CAVITY CANCER
     Dosage: (100 MG/M2)
     Dates: start: 20100301
  3. DOXYCYCLINE [Concomitant]
  4. ANZEMET [Concomitant]
  5. DILAUDID [Concomitant]
  6. PEPCID [Concomitant]
  7. ACETYL-L-CARNITINE (ACETYLCARNITINE) [Concomitant]
  8. AVODART [Concomitant]
  9. MAGIC MOUTHWASH [Concomitant]
  10. WARFARIN SODIUM [Concomitant]
  11. BETAMETHASONE VALERATE [Concomitant]

REACTIONS (2)
  - HYPOTENSION [None]
  - OXYGEN SATURATION DECREASED [None]
